FAERS Safety Report 9105731 (Version 2)
Quarter: 2013Q4

REPORT INFORMATION
  Report Type: Report from Study
  Country: JP (occurrence: JP)
  Receive Date: 20130221
  Receipt Date: 20131002
  Transmission Date: 20140711
  Serious: Yes (Death)
  Sender: FDA-Public Use
  Company Number: JP-GLAXOSMITHKLINE-B0853448A

PATIENT
  Age: 73 Year
  Sex: Female
  Weight: 40 kg

DRUGS (37)
  1. SAMTIREL [Suspect]
     Indication: ANTIFUNGAL PROPHYLAXIS
     Dosage: 1500MG PER DAY
     Route: 048
     Dates: start: 20121202, end: 20130123
  2. UNKNOWN DRUG [Concomitant]
     Route: 065
  3. DAIPHEN [Concomitant]
     Indication: ANTIFUNGAL PROPHYLAXIS
     Dosage: 3G TWICE PER DAY
     Route: 048
     Dates: start: 20121206, end: 20121212
  4. METOLATE [Concomitant]
     Route: 048
     Dates: start: 20120803, end: 20121203
  5. PREDNISOLONE [Concomitant]
     Dosage: 5MG PER DAY
     Route: 048
     Dates: start: 20120817, end: 20121213
  6. PREDNISOLONE [Concomitant]
     Indication: INTERSTITIAL LUNG DISEASE
     Dosage: 40MG PER DAY
     Route: 048
     Dates: start: 20121214, end: 20121219
  7. PREDNISOLONE [Concomitant]
     Indication: INTERSTITIAL LUNG DISEASE
     Dosage: 30MG PER DAY
     Route: 048
     Dates: start: 20121220, end: 20121226
  8. PREDNISOLONE [Concomitant]
     Indication: INTERSTITIAL LUNG DISEASE
     Dosage: 25MG PER DAY
     Route: 048
     Dates: start: 20121227, end: 20130109
  9. PREDNISOLONE [Concomitant]
     Indication: INTERSTITIAL LUNG DISEASE
     Dosage: 20MG PER DAY
     Route: 048
     Dates: start: 20130110, end: 20130122
  10. SOL-MELCORT [Concomitant]
     Indication: INTERSTITIAL LUNG DISEASE
     Dosage: 1000MG PER DAY
     Route: 042
     Dates: start: 20121205, end: 20121208
  11. SOL-MELCORT [Concomitant]
     Indication: INTERSTITIAL LUNG DISEASE
     Dosage: 40MG TWICE PER DAY
     Route: 042
     Dates: start: 20121209
  12. MUCOSTA [Concomitant]
     Indication: PROPHYLAXIS
     Dosage: 100MG TWICE PER DAY
     Route: 048
     Dates: start: 20120817, end: 20121213
  13. MUCOSTA [Concomitant]
     Indication: PROPHYLAXIS
     Dosage: 100MG THREE TIMES PER DAY
     Route: 048
     Dates: start: 20121231, end: 20130117
  14. LOXONIN [Concomitant]
     Dosage: 60MG TWICE PER DAY
     Route: 048
     Dates: start: 20120817, end: 20121213
  15. SOLITA-T [Concomitant]
     Dosage: 500ML PER DAY
     Route: 042
     Dates: start: 20121212, end: 20121213
  16. VITAMEDIN [Concomitant]
     Dosage: 1IUAX PER DAY
     Route: 042
     Dates: start: 20121208, end: 20121213
  17. HYPEN [Concomitant]
     Dosage: 200MG TWICE PER DAY
     Route: 048
     Dates: start: 20121209, end: 20121212
  18. FLUCONAZOLE [Concomitant]
     Dosage: 100MG PER DAY
     Route: 048
     Dates: start: 20121209, end: 20121215
  19. MUCOFILIN [Concomitant]
     Dosage: 1IUAX FOUR TIMES PER DAY
     Route: 055
     Dates: start: 20121207, end: 20121213
  20. FOLIAMIN [Concomitant]
     Dosage: 5MG THREE TIMES PER DAY
     Route: 048
     Dates: start: 20121209, end: 20130122
  21. VITAMEDIN [Concomitant]
     Dosage: 1IUAX THREE TIMES PER DAY
     Route: 048
     Dates: start: 20121209, end: 20130122
  22. MOBIC [Concomitant]
     Dosage: 5MG PER DAY
     Route: 048
     Dates: start: 20121210, end: 20121219
  23. DIART [Concomitant]
     Dosage: 30MG PER DAY
     Route: 048
     Dates: start: 20121211, end: 20121219
  24. CALONAL [Concomitant]
     Dosage: 400MG THREE TIMES PER DAY
     Route: 048
     Dates: start: 20121212, end: 20130122
  25. PANTOSIN [Concomitant]
     Dosage: .5G THREE TIMES PER DAY
     Route: 048
     Dates: start: 20121212, end: 20130122
  26. GEBEN [Concomitant]
     Route: 062
     Dates: start: 20121212, end: 20130122
  27. LANSOPRAZOLE [Concomitant]
     Dosage: 15MG PER DAY
     Route: 048
     Dates: start: 20121214, end: 20121214
  28. FAMOTIDINE D [Concomitant]
     Dosage: 10MG PER DAY
     Route: 048
     Dates: start: 20121214, end: 20130122
  29. ARASENA-A [Concomitant]
     Route: 062
     Dates: start: 20121214, end: 20130122
  30. TRANSAMIN [Concomitant]
     Dosage: 250MG THREE TIMES PER DAY
     Route: 048
     Dates: start: 20121217, end: 20130122
  31. FLORID [Concomitant]
     Route: 048
     Dates: start: 20121217, end: 20121228
  32. FLAVITAN [Concomitant]
     Dosage: 10MG THREE TIMES PER DAY
     Route: 048
     Dates: start: 20121219, end: 20130122
  33. VFEND [Concomitant]
     Dosage: 100MG TWICE PER DAY
     Route: 048
     Dates: start: 20121227, end: 20130122
  34. HIRUDOID [Concomitant]
     Route: 062
     Dates: start: 20130108, end: 20130122
  35. ACUATIM [Concomitant]
     Route: 062
     Dates: start: 20130109, end: 20130122
  36. LAXOBERON [Concomitant]
     Dosage: 15IUAX PER DAY
     Route: 048
     Dates: start: 20121213, end: 20121213
  37. NEOSTELIN GREEN [Concomitant]
     Route: 002
     Dates: start: 20121207, end: 20130122

REACTIONS (2)
  - Platelet count decreased [Recovering/Resolving]
  - Myocardial infarction [Fatal]
